FAERS Safety Report 6492984-5 (Version None)
Quarter: 2009Q4

REPORT INFORMATION
  Report Type: 
  Country: None (occurrence: None)
  Receive Date: 20091214
  Receipt Date: 20091204
  Transmission Date: 20100525
  Serious: Yes (Other)
  Sender: FDA-Public Use
  Company Number: US-AMGEN-QUU378549

PATIENT
  Sex: Male

DRUGS (1)
  1. ENBREL [Suspect]
     Indication: PSORIATIC ARTHROPATHY
     Route: 058
     Dates: start: 19991201

REACTIONS (4)
  - MYCOBACTERIUM AVIUM COMPLEX INFECTION [None]
  - ORAL CANDIDIASIS [None]
  - PNEUMONIA [None]
  - PSORIATIC ARTHROPATHY [None]
